FAERS Safety Report 23516974 (Version 2)
Quarter: 2024Q1

REPORT INFORMATION
  Report Type: Other
  Country: DE (occurrence: None)
  Receive Date: 20240213
  Receipt Date: 20240219
  Transmission Date: 20240409
  Serious: Yes (Hospitalization)
  Sender: FDA-Public Use
  Company Number: DE-ROCHE-2758868

PATIENT
  Age: 68 Year
  Sex: Female

DRUGS (3)
  1. OCREVUS [Suspect]
     Active Substance: OCRELIZUMAB
     Indication: Primary progressive multiple sclerosis
     Route: 042
     Dates: start: 20180926
  2. OCREVUS [Suspect]
     Active Substance: OCRELIZUMAB
     Dosage: 600 MG FOR 190 DAYS
     Route: 042
     Dates: start: 20200623
  3. COMIRNATY (TOZINAMERAN) [Concomitant]
     Active Substance: TOZINAMERAN
     Dosage: SECOND VACCINE ON 26/MAY/2021
     Dates: start: 20210414

REACTIONS (11)
  - Pleurisy [Recovered/Resolved]
  - Pneumonia [Recovering/Resolving]
  - Ankle fracture [Recovering/Resolving]
  - Urinary tract infection [Unknown]
  - Osteoarthritis [Recovering/Resolving]
  - Dyspepsia [Recovered/Resolved]
  - Foot fracture [Recovered/Resolved]
  - Pain in extremity [Recovered/Resolved]
  - Gait disturbance [Not Recovered/Not Resolved]
  - Memory impairment [Not Recovered/Not Resolved]
  - COVID-19 [Recovered/Resolved]

NARRATIVE: CASE EVENT DATE: 20200401
